FAERS Safety Report 6130872-4 (Version None)
Quarter: 2009Q1

REPORT INFORMATION
  Report Type: 
  Country: None (occurrence: None)
  Receive Date: 20090325
  Receipt Date: 20090319
  Transmission Date: 20090719
  Serious: Yes (Death, Hospitalization, Other)
  Sender: FDA-Public Use
  Company Number: JP-BRISTOL-MYERS SQUIBB COMPANY-14432181

PATIENT
  Age: 75 Year
  Sex: Female

DRUGS (9)
  1. MAXIPIME [Suspect]
     Indication: PYREXIA
     Route: 041
     Dates: start: 20081024, end: 20081109
  2. MAXIPIME [Suspect]
     Indication: INFECTION
     Route: 041
     Dates: start: 20081024, end: 20081109
  3. THYRADIN S [Concomitant]
     Route: 048
     Dates: start: 20081024, end: 20081109
  4. LASIX [Concomitant]
     Route: 048
     Dates: start: 20081024, end: 20081109
  5. ALFAROL [Concomitant]
     Route: 048
     Dates: start: 20081024, end: 20081109
  6. ADALAT [Concomitant]
     Route: 048
     Dates: start: 20081024, end: 20081029
  7. GLAKAY [Concomitant]
     Route: 048
     Dates: start: 20081024, end: 20081109
  8. BASEN [Concomitant]
     Route: 048
     Dates: start: 20081024, end: 20081109
  9. MARZULENE-S [Concomitant]
     Route: 048
     Dates: start: 20081024, end: 20081109

REACTIONS (5)
  - ALTERED STATE OF CONSCIOUSNESS [None]
  - BLOOD CREATININE INCREASED [None]
  - CARDIAC FAILURE [None]
  - MYOCLONUS [None]
  - RENAL FAILURE CHRONIC [None]
